FAERS Safety Report 25786528 (Version 1)
Quarter: 2025Q3

REPORT INFORMATION
  Report Type: Spontaneous
  Country: US (occurrence: None)
  Receive Date: 20250909
  Receipt Date: 20250909
  Transmission Date: 20251021
  Serious: Yes (Disabling)
  Sender: FDA-CTU
  Company Number: None

PATIENT
  Age: 71 Year
  Sex: Female
  Weight: 78.75 kg

DRUGS (4)
  1. CYCLOBENZAPRINE [Suspect]
     Active Substance: CYCLOBENZAPRINE
     Indication: Muscle spasms
     Dosage: OTHER QUANTITY : 1 TABLET(S);?FREQUENCY : EVERY 12 HOURS;?
     Route: 048
     Dates: start: 20250804, end: 20250805
  2. periodic oxygen [Concomitant]
  3. Vit B chdwable [Concomitant]
  4. papaya enzymes [Concomitant]

REACTIONS (2)
  - Mouth swelling [None]
  - Oral discomfort [None]

NARRATIVE: CASE EVENT DATE: 20250804
